FAERS Safety Report 14676033 (Version 1)
Quarter: 2018Q1

REPORT INFORMATION
  Report Type: Spontaneous
  Country: IN (occurrence: IN)
  Receive Date: 20180323
  Receipt Date: 20180323
  Transmission Date: 20180509
  Serious: Yes (Other)
  Sender: FDA-Public Use
  Company Number: IN-ARBOR PHARMACEUTICALS, LLC-IN-2018ARB000371

PATIENT
  Age: 65 Year
  Sex: Male

DRUGS (4)
  1. IVERMECTIN. [Suspect]
     Active Substance: IVERMECTIN
     Indication: HOOKWORM INFECTION
     Dosage: 12 MG, UNK
  2. IVERMECTIN. [Suspect]
     Active Substance: IVERMECTIN
     Dosage: UNK
  3. ALBENDAZOLE [Suspect]
     Active Substance: ALBENDAZOLE
     Indication: HOOKWORM INFECTION
     Dosage: 400 MG, UNK
  4. ALBENDAZOLE [Suspect]
     Active Substance: ALBENDAZOLE
     Dosage: UNK

REACTIONS (1)
  - Delirium [Recovered/Resolved]
